FAERS Safety Report 10785558 (Version 1)
Quarter: 2015Q1

REPORT INFORMATION
  Report Type: Report from Study
  Country: NE (occurrence: NE)
  Receive Date: 20150211
  Receipt Date: 20150211
  Transmission Date: 20150721
  Serious: Yes (Other)
  Sender: FDA-Public Use
  Company Number: NE-MYLANLABS-2015M1003563

PATIENT

DRUGS (1)
  1. TRAMADOL [Suspect]
     Active Substance: TRAMADOL
     Dosage: 1200MG DOSE BEFORE SEIZURE
     Route: 048

REACTIONS (5)
  - Epilepsy [Unknown]
  - Drug abuse [Unknown]
  - Tobacco interaction [Unknown]
  - Drug dependence [Unknown]
  - Food interaction [Unknown]
